FAERS Safety Report 7973657-6 (Version None)
Quarter: 2011Q4

REPORT INFORMATION
  Report Type: 
  Country: None (occurrence: None)
  Receive Date: 20111213
  Receipt Date: 20111207
  Transmission Date: 20120403
  Serious: Yes (Other)
  Sender: FDA-Public Use
  Company Number: US-GILEAD-2011-0047024

PATIENT
  Sex: Male

DRUGS (2)
  1. ADCIRCA [Concomitant]
  2. LETAIRIS [Suspect]
     Indication: PULMONARY HYPERTENSION
     Dosage: 5 MG, UNK
     Route: 048
     Dates: start: 20111027, end: 20111114

REACTIONS (5)
  - OXYGEN SUPPLEMENTATION [None]
  - OXYGEN SATURATION DECREASED [None]
  - PANIC ATTACK [None]
  - DYSPNOEA [None]
  - FLUID OVERLOAD [None]
